FAERS Safety Report 5787127-7 (Version None)
Quarter: 2008Q2

REPORT INFORMATION
  Report Type: 
  Country: None (occurrence: None)
  Receive Date: 20080623
  Receipt Date: 20080623
  Transmission Date: 20081010
  Serious: Yes (Hospitalization)
  Sender: FDA-Public Use
  Company Number: None

PATIENT
  Age: 67 Year
  Sex: Male
  Weight: 67 kg

DRUGS (2)
  1. OMNIPAQUE 140 [Suspect]
     Indication: NEPHROLITHIASIS
     Dosage: ONCE
  2. GASTROGRAFIN [Suspect]
     Dosage: ONCE

REACTIONS (1)
  - CHILLS [None]
